FAERS Safety Report 20550836 (Version 2)
Quarter: 2022Q1

REPORT INFORMATION
  Report Type: Spontaneous
  Country: DE (occurrence: DE)
  Receive Date: 20220304
  Receipt Date: 20220331
  Transmission Date: 20220424
  Serious: Yes (Hospitalization)
  Sender: FDA-Public Use
  Company Number: DE-NOVARTISPH-NVSC2022DE049543

PATIENT
  Sex: Female

DRUGS (2)
  1. TASIGNA [Suspect]
     Active Substance: NILOTINIB
     Indication: Chronic myeloid leukaemia
     Dosage: 150 MG, (1-0-1) (2 CAPSULE EACH IN THE MORNING AND IN THE EVENING)
     Route: 065
     Dates: start: 20171030, end: 2017
  2. TASIGNA [Suspect]
     Active Substance: NILOTINIB
     Dosage: 150 MG, (1-0-1) (1 CAPSULE EACH IN THE MORNING AND IN THE EVENING)
     Route: 065
     Dates: start: 2017

REACTIONS (3)
  - Skin reaction [Unknown]
  - Cystitis [Recovered/Resolved]
  - Incorrect dose administered [Unknown]

NARRATIVE: CASE EVENT DATE: 20170101
